FAERS Safety Report 21563458 (Version 1)
Quarter: 2022Q4

REPORT INFORMATION
  Report Type: Spontaneous
  Country: US (occurrence: US)
  Receive Date: 20221108
  Receipt Date: 20221108
  Transmission Date: 20230113
  Serious: No
  Sender: FDA-Public Use
  Company Number: US-Accord-269184

PATIENT
  Age: 80 Year
  Sex: Female
  Weight: 67.59 kg

DRUGS (3)
  1. HYDROCHLOROTHIAZIDE [Suspect]
     Active Substance: HYDROCHLOROTHIAZIDE
     Indication: Hypertension
     Dosage: DOSE: 12.5MG TWICE DAILY AND IN 2010/ 2011, PRESCRIBED TO BE TAKEN 25MG ONCE DAILY
     Route: 048
     Dates: start: 2007
  2. ZETIA [Concomitant]
     Active Substance: EZETIMIBE
     Indication: Blood cholesterol increased
     Route: 048
  3. HYDROCHLOROTHIAZIDE [Suspect]
     Active Substance: HYDROCHLOROTHIAZIDE
     Indication: Hypertension
     Dosage: STRENGTH: 25 MG?DOSE: STARTED TAKING 1/2 OF THE 25MG
     Route: 048

REACTIONS (4)
  - Pollakiuria [Not Recovered/Not Resolved]
  - Intentional product use issue [Unknown]
  - Wrong technique in product usage process [Unknown]
  - Neck pain [Recovering/Resolving]

NARRATIVE: CASE EVENT DATE: 20211001
